FAERS Safety Report 22206465 (Version 2)
Quarter: 2023Q2

REPORT INFORMATION
  Report Type: Spontaneous
  Country: FR (occurrence: FR)
  Receive Date: 20230413
  Receipt Date: 20230616
  Transmission Date: 20230722
  Serious: Yes (Life-Threatening)
  Sender: FDA-Public Use
  Company Number: None

PATIENT
  Age: 69 Year
  Sex: Male
  Weight: 90 kg

DRUGS (17)
  1. XARELTO [Suspect]
     Active Substance: RIVAROXABAN
     Indication: Atrial fibrillation
     Dosage: 60 MILLIGRAM, ONCE
     Route: 048
     Dates: start: 20220127, end: 20220127
  2. METFORMIN [Suspect]
     Active Substance: METFORMIN HYDROCHLORIDE
     Dosage: 8 GRAM
     Route: 048
     Dates: start: 20220127, end: 20220127
  3. LORMETAZEPAM [Suspect]
     Active Substance: LORMETAZEPAM
     Dosage: 4 MILLIGRAM, ONCE
     Route: 048
     Dates: start: 20220127, end: 20220127
  4. ALLOPURINOL [Suspect]
     Active Substance: ALLOPURINOL
     Dosage: 800 MILLIGRAM, ONCE
     Route: 048
     Dates: start: 20220127, end: 20220127
  5. CYAMEMAZINE [Suspect]
     Active Substance: CYAMEMAZINE
     Dosage: 200 MILLIGRAM, ONCE
     Route: 048
     Dates: start: 20220127, end: 20220127
  6. NEURONTIN [Suspect]
     Active Substance: GABAPENTIN
     Dosage: 3600 MILLIGRAM, ONCE
     Route: 048
     Dates: start: 20220127, end: 20220127
  7. FUROSEMIDE [Suspect]
     Active Substance: FUROSEMIDE
     Dosage: 160 MILLIGRAM, ONCE
     Route: 048
     Dates: start: 20220127, end: 20220127
  8. LAMICTAL [Suspect]
     Active Substance: LAMOTRIGINE
     Dosage: 1000 MILLIGRAM, ONCE
     Route: 048
     Dates: start: 20220127, end: 20220127
  9. TRAMADOL HYDROCHLORIDE [Suspect]
     Active Substance: TRAMADOL HYDROCHLORIDE
     Indication: Pain
     Route: 048
     Dates: start: 20220127, end: 20220127
  10. ZOPICLONE [Suspect]
     Active Substance: ZOPICLONE
     Dosage: 15 MILLIGRAM, ONCE
     Route: 048
     Dates: start: 20220127, end: 20220127
  11. TAMSULOSIN HYDROCHLORIDE [Suspect]
     Active Substance: TAMSULOSIN HYDROCHLORIDE
     Indication: Benign prostatic hyperplasia
     Route: 048
     Dates: start: 20220127, end: 20220127
  12. MESTINON [Suspect]
     Active Substance: PYRIDOSTIGMINE BROMIDE
     Dosage: 480 MILLIGRAM, ONCE
     Route: 048
     Dates: start: 20220127, end: 20220127
  13. ATORVASTATIN [Suspect]
     Active Substance: ATORVASTATIN
     Dosage: 80 MILLIGRAM, ONCE
     Route: 048
     Dates: start: 20220127, end: 20220127
  14. TRILEPTAL [Suspect]
     Active Substance: OXCARBAZEPINE
     Dosage: 2400 MILLIGRAM, ONCE
     Route: 048
     Dates: start: 20220127, end: 20220127
  15. QUETIAPINE FUMARATE [Suspect]
     Active Substance: QUETIAPINE FUMARATE
     Dosage: 400 MILLIGRAM, ONCE
     Route: 048
     Dates: start: 20220127, end: 20220127
  16. CHOLECALCIFEROL [Concomitant]
     Active Substance: CHOLECALCIFEROL
     Dosage: UNK
     Route: 065
  17. ACETAMINOPHEN [Concomitant]
     Active Substance: ACETAMINOPHEN
     Dosage: UNK
     Route: 065

REACTIONS (4)
  - Coma [Recovered/Resolved]
  - Acute kidney injury [Recovered/Resolved]
  - Lactic acidosis [Recovered/Resolved]
  - Poisoning deliberate [Recovered/Resolved]

NARRATIVE: CASE EVENT DATE: 20220127
